FAERS Safety Report 5865001-5 (Version None)
Quarter: 2008Q3

REPORT INFORMATION
  Report Type: 
  Country: None (occurrence: None)
  Receive Date: 20080829
  Receipt Date: 20080826
  Transmission Date: 20090109
  Serious: Yes (Hospitalization)
  Sender: FDA-Public Use
  Company Number: A0669254A

PATIENT
  Age: 63 Year
  Sex: Female
  Weight: 74 kg

DRUGS (1)
  1. SERETIDE [Suspect]
     Indication: ASTHMA
     Route: 065
     Dates: start: 20060801

REACTIONS (3)
  - ASTHMA [None]
  - DRUG INEFFECTIVE [None]
  - LUNG NEOPLASM [None]
